FAERS Safety Report 21297110 (Version 1)
Quarter: 2022Q3

REPORT INFORMATION
  Report Type: Spontaneous
  Country: ES (occurrence: ES)
  Receive Date: 20220906
  Receipt Date: 20220906
  Transmission Date: 20221026
  Serious: Yes (Hospitalization)
  Sender: FDA-Public Use
  Company Number: ES-MYLANLABS-2022M1090700

PATIENT
  Age: 79 Year
  Sex: Female

DRUGS (10)
  1. CINACALCET HYDROCHLORIDE [Suspect]
     Active Substance: CINACALCET HYDROCHLORIDE
     Indication: Hyperparathyroidism secondary
     Dosage: 30 MILLIGRAM, QOD (EVERY 48 HRS)
     Route: 065
     Dates: start: 201806
  2. CINACALCET HYDROCHLORIDE [Suspect]
     Active Substance: CINACALCET HYDROCHLORIDE
     Dosage: 90 MILLIGRAM, QD
     Route: 065
     Dates: start: 201912
  3. CALCIFEDIOL [Suspect]
     Active Substance: CALCIFEDIOL
     Indication: Hyperparathyroidism secondary
     Dosage: 0.266 MICROGRAM, QW
     Route: 065
     Dates: start: 201806
  4. CALCIFEDIOL [Suspect]
     Active Substance: CALCIFEDIOL
     Dosage: 0.266 MICROGRAM, BIWEEKLY
     Route: 065
     Dates: start: 202009
  5. PARICALCITOL [Suspect]
     Active Substance: PARICALCITOL
     Indication: Hyperparathyroidism secondary
     Dosage: 3 MICROGRAM, QW
     Route: 065
     Dates: start: 201806
  6. PARICALCITOL [Suspect]
     Active Substance: PARICALCITOL
     Dosage: 6 MICROGRAM, QW
     Route: 065
     Dates: start: 201912
  7. PARICALCITOL [Suspect]
     Active Substance: PARICALCITOL
     Dosage: 15 MICROGRAM, QW
     Route: 065
     Dates: start: 202009
  8. PARICALCITOL [Suspect]
     Active Substance: PARICALCITOL
     Dosage: 10 MICROGRAM, QW (DOSE DECREASED)
     Route: 065
     Dates: start: 202009
  9. CALCIUM CARBONATE [Concomitant]
     Active Substance: CALCIUM CARBONATE
     Indication: Product used for unknown indication
     Dosage: 1500 MILLIGRAM, QD
     Route: 065
     Dates: start: 201806
  10. CALCIUM CARBONATE [Concomitant]
     Active Substance: CALCIUM CARBONATE
     Dosage: 2000 MILLIGRAM, QD
     Route: 065
     Dates: start: 201912

REACTIONS (2)
  - Drug ineffective [Unknown]
  - Off label use [Unknown]

NARRATIVE: CASE EVENT DATE: 20180601
